FAERS Safety Report 18683233 (Version 1)
Quarter: 2020Q4

REPORT INFORMATION
  Report Type: Spontaneous
  Country: CN (occurrence: CN)
  Receive Date: 20201230
  Receipt Date: 20201230
  Transmission Date: 20210114
  Serious: Yes (Death, Hospitalization)
  Sender: FDA-Public Use
  Company Number: CN-STRIDES ARCOLAB LIMITED-2020SP016502

PATIENT
  Age: 56 Year
  Sex: Male

DRUGS (15)
  1. TACROLIMUS. [Suspect]
     Active Substance: TACROLIMUS
     Indication: LIVER TRANSPLANT
     Dosage: 0.05 MILLIGRAM/KILOGRAM, UNK
     Route: 048
     Dates: start: 2017, end: 2017
  2. METHYLPREDNISOLONE. [Suspect]
     Active Substance: METHYLPREDNISOLONE
     Indication: LIVER TRANSPLANT
     Dosage: 0.5 GRAM, UNK, PRIOR TO REPERFUSION OF THE GRAFT
     Route: 065
     Dates: start: 2017, end: 2017
  3. METHYLPREDNISOLONE. [Suspect]
     Active Substance: METHYLPREDNISOLONE
     Dosage: 120 MILLIGRAM, UNK ON DAY 3 POST TRANSPLANT
     Route: 065
     Dates: start: 2017, end: 2017
  4. MYCOPHENOLATE MOFETIL. [Suspect]
     Active Substance: MYCOPHENOLATE MOFETIL
     Dosage: UNK, TAPERED
     Route: 065
     Dates: start: 2017
  5. BASILIXIMAB [Suspect]
     Active Substance: BASILIXIMAB
     Indication: LIVER TRANSPLANT
     Dosage: UNK, SINGLE, INDUCTION
     Route: 065
     Dates: start: 2017, end: 2017
  6. METHYLPREDNISOLONE. [Suspect]
     Active Substance: METHYLPREDNISOLONE
     Dosage: 200 MILLIGRAM, UNK ON DAY 1 POST TRANSPLANT
     Route: 065
     Dates: start: 2017, end: 2017
  7. METHYLPREDNISOLONE. [Suspect]
     Active Substance: METHYLPREDNISOLONE
     Dosage: 40 MILLIGRAM, UNK ON DAY 5 POST TRANSPLANT
     Route: 065
     Dates: start: 2017, end: 2017
  8. METHYLPREDNISOLONE. [Suspect]
     Active Substance: METHYLPREDNISOLONE
     Dosage: 20 MILLIGRAM, UNK ON DAY 6 POST TRANSPLANT
     Route: 065
     Dates: start: 2017
  9. METHYLPREDNISOLONE. [Suspect]
     Active Substance: METHYLPREDNISOLONE
     Dosage: UNK, TAPERED
     Route: 065
  10. METHYLPREDNISOLONE. [Suspect]
     Active Substance: METHYLPREDNISOLONE
     Dosage: 80 MILLIGRAM, UNK ON DAY 4 POST TRANSPLANT
     Route: 065
     Dates: start: 2017, end: 2017
  11. TENOFOVIR [Concomitant]
     Active Substance: TENOFOVIR
     Indication: HEPATIC CIRRHOSIS
     Dosage: UNK
     Route: 065
     Dates: start: 2017
  12. MYCOPHENOLATE MOFETIL. [Suspect]
     Active Substance: MYCOPHENOLATE MOFETIL
     Dosage: UNK, LATTER WAS THEN ADJUSTED ACCORDING TO WBC COUNTS
     Route: 065
     Dates: start: 2017, end: 2017
  13. TACROLIMUS. [Suspect]
     Active Substance: TACROLIMUS
     Dosage: UNK, TAPERED
     Route: 048
     Dates: start: 2017
  14. METHYLPREDNISOLONE. [Suspect]
     Active Substance: METHYLPREDNISOLONE
     Dosage: 160 MILLIGRAM, UNK ON DAY 2 POST TRANSPLANT
     Route: 065
     Dates: start: 2017, end: 2017
  15. MYCOPHENOLATE MOFETIL. [Suspect]
     Active Substance: MYCOPHENOLATE MOFETIL
     Indication: LIVER TRANSPLANT
     Dosage: 0.75 GRAM, BID
     Route: 065
     Dates: start: 2017, end: 2017

REACTIONS (3)
  - Cachexia [Fatal]
  - Intestinal obstruction [Recovered/Resolved]
  - Leiomyosarcoma [Not Recovered/Not Resolved]

NARRATIVE: CASE EVENT DATE: 2017
